FAERS Safety Report 19999654 (Version 1)
Quarter: 2021Q4

REPORT INFORMATION
  Report Type: Spontaneous
  Country: FR (occurrence: FR)
  Receive Date: 20211027
  Receipt Date: 20211027
  Transmission Date: 20220303
  Serious: Yes (Life-Threatening)
  Sender: FDA-Public Use
  Company Number: FR-ABBVIE-21K-056-4136271-00

PATIENT
  Age: 69 Year
  Sex: Male
  Weight: 103 kg

DRUGS (5)
  1. DEPAKOTE [Suspect]
     Active Substance: DIVALPROEX SODIUM
     Indication: Toxicity to various agents
     Route: 048
     Dates: start: 20190604
  2. DEPAKOTE [Suspect]
     Active Substance: DIVALPROEX SODIUM
     Dosage: 1 DAY
     Route: 048
     Dates: start: 20190604
  3. OXAZEPAM [Suspect]
     Active Substance: OXAZEPAM
     Indication: Toxicity to various agents
     Route: 048
     Dates: start: 20190604
  4. QUETIAPINE FUMARATE [Suspect]
     Active Substance: QUETIAPINE FUMARATE
     Indication: Toxicity to various agents
     Route: 048
     Dates: start: 20190604
  5. ESCITALOPRAM OXALATE [Suspect]
     Active Substance: ESCITALOPRAM OXALATE
     Indication: Toxicity to various agents
     Route: 048
     Dates: start: 20190604

REACTIONS (5)
  - Electrocardiogram QT prolonged [Recovered/Resolved]
  - Miosis [Recovered/Resolved]
  - Toxicity to various agents [Recovered/Resolved]
  - Bradycardia [Recovered/Resolved]
  - Coma [Recovered/Resolved]

NARRATIVE: CASE EVENT DATE: 20190604
